FAERS Safety Report 7369590-3 (Version None)
Quarter: 2011Q1

REPORT INFORMATION
  Report Type: 
  Country: None (occurrence: None)
  Receive Date: 20110323
  Receipt Date: 20110310
  Transmission Date: 20110831
  Serious: Yes (Life-Threatening, Hospitalization, Other)
  Sender: FDA-Public Use
  Company Number: DE-WATSON-2011-03393

PATIENT
  Age: 67 Year
  Sex: Female
  Weight: 93 kg

DRUGS (8)
  1. DICLOFENAC [Suspect]
     Indication: SPINAL OSTEOARTHRITIS
     Dosage: IF REQUIRED
     Route: 048
     Dates: end: 20101102
  2. IBUHEXAL                           /00109201/ [Suspect]
     Indication: SPINAL OSTEOARTHRITIS
     Dosage: 400 MG, DAILY
     Route: 048
     Dates: start: 20101103, end: 20101103
  3. AMLODIPINE BESYLATE [Suspect]
     Indication: HYPERTENSION
     Dosage: 5 - 10MG, DAILY
     Route: 048
     Dates: start: 20101103, end: 20101109
  4. DELIX                              /00885601/ [Suspect]
     Dosage: 1X1 DAILY
     Dates: start: 20101101
  5. DELIX                              /00885601/ [Suspect]
     Indication: PRODUCT USED FOR UNKNOWN INDICATION
     Dosage: 2X1 DAILY
     Route: 048
     Dates: start: 20101105, end: 20101129
  6. RAMIPRIL (WATSON LABORATORIES) [Suspect]
     Indication: PRODUCT USED FOR UNKNOWN INDICATION
     Dosage: 2.5 MG, BID
     Route: 048
     Dates: start: 20100923, end: 20101102
  7. IBUPROFEN [Suspect]
     Indication: SPINAL OSTEOARTHRITIS
     Dosage: PRN
     Route: 048
     Dates: end: 20101102
  8. CORDAREX                           /00133102/ [Suspect]
     Indication: ATRIAL FIBRILLATION
     Dosage: 200 - 600MG, DAILY
     Route: 048
     Dates: start: 20101103, end: 20101109

REACTIONS (1)
  - RENAL FAILURE ACUTE [None]
